FAERS Safety Report 17952564 (Version 1)
Quarter: 2020Q2

REPORT INFORMATION
  Report Type: Spontaneous
  Country: US (occurrence: US)
  Receive Date: 20200626
  Receipt Date: 20200626
  Transmission Date: 20200714
  Serious: No
  Sender: FDA-Public Use
  Company Number: US-AMGEN-USA-20200207903

PATIENT
  Age: 34 Year
  Sex: Female

DRUGS (4)
  1. SPIRONOLACTON [Concomitant]
     Active Substance: SPIRONOLACTONE
     Dosage: UNK
  2. OTEZLA [Suspect]
     Active Substance: APREMILAST
     Indication: PALMOPLANTAR PUSTULOSIS
     Dosage: 30 MILLIGRAM, BID
     Route: 048
     Dates: start: 20190716
  3. AZELAIC ACID. [Concomitant]
     Active Substance: AZELAIC ACID
     Dosage: UNK
  4. OTEZLA [Suspect]
     Active Substance: APREMILAST
     Dosage: 30 MILLIGRAM, BID
     Route: 048

REACTIONS (2)
  - Off label use [Unknown]
  - Palmoplantar pustulosis [Not Recovered/Not Resolved]

NARRATIVE: CASE EVENT DATE: 20190716
